FAERS Safety Report 8519487 (Version 2)
Quarter: 2012Q4

REPORT INFORMATION
  Report Type: 
  Country: RU (occurrence: RU)
  Receive Date: 20120418
  Receipt Date: 20121019
  Transmission Date: 20130627
  Serious: Yes (Other)
  Sender: FDA-Public Use
  Company Number: RU-BAYER-2012-031027

PATIENT
  Sex: Female

DRUGS (1)
  1. QLAIRA [Suspect]
     Indication: CONTRACEPTION
     Route: 048

REACTIONS (5)
  - Pregnancy on oral contraceptive [None]
  - Abortion threatened [Recovered/Resolved]
  - Intestinal obstruction [Recovered/Resolved]
  - Cervical incompetence [Recovered/Resolved]
  - Premature delivery [None]
